FAERS Safety Report 5684751-7 (Version None)
Quarter: 2008Q1

REPORT INFORMATION
  Report Type: 
  Country: None (occurrence: None)
  Receive Date: 20080328
  Receipt Date: 19900402
  Transmission Date: 20080703
  Serious: Yes (Death)
  Sender: FDA-Public Use
  Company Number: BR-ROCHE-13429

PATIENT
  Age: 34 Year
  Sex: Male

DRUGS (2)
  1. CYTOVENE [Suspect]
     Route: 042
     Dates: start: 19891113, end: 19891127
  2. BACTRIM [Concomitant]

REACTIONS (1)
  - DEATH [None]
